FAERS Safety Report 24303233 (Version 1)
Quarter: 2024Q3

REPORT INFORMATION
  Report Type: Spontaneous
  Country: US (occurrence: None)
  Receive Date: 20240908
  Receipt Date: 20240908
  Transmission Date: 20241017
  Serious: Yes (Other)
  Sender: Public
  Company Number: None

PATIENT
  Age: 74 Year
  Sex: Male
  Weight: 74 kg

DRUGS (1)
  1. LISOCABTAGENE MARALEUCEL [Suspect]
     Active Substance: LISOCABTAGENE MARALEUCEL
     Indication: Diffuse large B-cell lymphoma
     Dosage: INTRAVENOUS
     Route: 042
     Dates: start: 20230223

REACTIONS (1)
  - Peripheral T-cell lymphoma unspecified [None]

NARRATIVE: CASE EVENT DATE: 20240702
